FAERS Safety Report 5464061-3 (Version None)
Quarter: 2007Q3

REPORT INFORMATION
  Report Type: 
  Country: None (occurrence: None)
  Receive Date: 20070921
  Receipt Date: 20070912
  Transmission Date: 20080115
  Serious: Yes (Hospitalization, Other)
  Sender: FDA-Public Use
  Company Number: US-JNJFOC-20070902985

PATIENT
  Sex: Female
  Weight: 120.2 kg

DRUGS (2)
  1. DURAGESIC-100 [Suspect]
     Route: 062
  2. DURAGESIC-100 [Suspect]
     Indication: PAIN
     Dosage: 3 X 100 UG/HR
     Route: 062

REACTIONS (14)
  - ABDOMINAL PAIN UPPER [None]
  - BLOOD GLUCOSE INCREASED [None]
  - CARDIAC FAILURE CONGESTIVE [None]
  - CYSTITIS [None]
  - DEPRESSED MOOD [None]
  - FATIGUE [None]
  - FLUID RETENTION [None]
  - HYPERTENSION [None]
  - MALAISE [None]
  - NAUSEA [None]
  - PAIN [None]
  - RENAL DISORDER [None]
  - SOMNOLENCE [None]
  - WEIGHT INCREASED [None]
